FAERS Safety Report 13323141 (Version 2)
Quarter: 2017Q1

REPORT INFORMATION
  Report Type: Spontaneous
  Country: DK (occurrence: DK)
  Receive Date: 20170309
  Receipt Date: 20170320
  Transmission Date: 20170428
  Serious: Yes (Other)
  Sender: FDA-Public Use
  Company Number: DK-AUROBINDO-AUR-APL-2017-30667

PATIENT
  Age: 72 Year
  Sex: Male

DRUGS (3)
  1. PROPOFOL. [Interacting]
     Active Substance: PROPOFOL
     Indication: GENERAL ANAESTHESIA
     Route: 042
  2. REMIFENTANIL [Suspect]
     Active Substance: REMIFENTANIL
     Indication: GENERAL ANAESTHESIA
     Route: 042
  3. DONEPEZIL FILM-COATED TABLETS [Suspect]
     Active Substance: DONEPEZIL
     Indication: DEMENTIA
     Route: 065

REACTIONS (2)
  - Drug interaction [Unknown]
  - Sinus bradycardia [Recovered/Resolved]
